FAERS Safety Report 11864094 (Version 1)
Quarter: 2015Q4

REPORT INFORMATION
  Report Type: Spontaneous
  Country: US (occurrence: US)
  Receive Date: 20151223
  Receipt Date: 20151223
  Transmission Date: 20160305
  Serious: No
  Sender: FDA-Public Use
  Company Number: US-GLAXOSMITHKLINE-US2015180306

PATIENT
  Age: 68 Year
  Sex: Female

DRUGS (2)
  1. ABREVA [Suspect]
     Active Substance: DOCOSANOL
     Indication: ORAL HERPES
     Dosage: 2 G, FIVE TIMES A DAY
     Dates: start: 20151215
  2. ABREVA [Suspect]
     Active Substance: DOCOSANOL
     Dosage: 2 G, QID
     Dates: start: 20151216, end: 20151219

REACTIONS (3)
  - Condition aggravated [Recovering/Resolving]
  - Inappropriate schedule of drug administration [Unknown]
  - Oral herpes [Recovering/Resolving]
